FAERS Safety Report 23811396 (Version 1)
Quarter: 2024Q2

REPORT INFORMATION
  Report Type: Spontaneous
  Country: CN (occurrence: None)
  Receive Date: 20240503
  Receipt Date: 20240503
  Transmission Date: 20240716
  Serious: Yes (Other)
  Sender: FDA-Public Use
  Company Number: 2024A103072

PATIENT
  Age: 23973 Day
  Sex: Female
  Weight: 51 kg

DRUGS (1)
  1. DAPAGLIFLOZIN [Suspect]
     Active Substance: DAPAGLIFLOZIN
     Indication: Blood glucose abnormal
     Route: 048
     Dates: start: 20240418, end: 20240426

REACTIONS (2)
  - Asthenia [Recovering/Resolving]
  - Ketosis [Recovering/Resolving]

NARRATIVE: CASE EVENT DATE: 20240426
